FAERS Safety Report 8776914 (Version 1)
Quarter: 2012Q4

REPORT INFORMATION
  Report Type: 
  Country: GB (occurrence: GB)
  Receive Date: 20120911
  Receipt Date: 20120911
  Transmission Date: 20130627
  Serious: Yes (Other)
  Sender: FDA-Public Use
  Company Number: GB-TEVA-356893ISR

PATIENT
  Age: 59 Year
  Sex: Female
  Weight: 73.93 kg

DRUGS (1)
  1. PROPRANOLOL [Suspect]
     Indication: ANXIETY

REACTIONS (4)
  - Cardiovascular disorder [Recovered/Resolved]
  - Feeling hot [Recovered/Resolved]
  - Pruritus [Recovered/Resolved]
  - Peripheral coldness [Recovered/Resolved]
